FAERS Safety Report 9006617 (Version 1)
Quarter: 2013Q1

REPORT INFORMATION
  Report Type: Spontaneous
  Country: NL (occurrence: NL)
  Receive Date: 20130110
  Receipt Date: 20130110
  Transmission Date: 20140127
  Serious: Yes (Other)
  Sender: FDA-Public Use
  Company Number: NL-ELI_LILLY_AND_COMPANY-NL201207005151

PATIENT
  Sex: Male

DRUGS (7)
  1. ZYPADHERA [Suspect]
     Indication: SCHIZOAFFECTIVE DISORDER
     Dosage: 300 MG, 2/M
     Route: 030
     Dates: start: 20120606
  2. AKINETON                                /AUS/ [Concomitant]
     Indication: SCHIZOAFFECTIVE DISORDER
     Dosage: 3 MG, TID
     Route: 048
  3. DEPAKINE CHRONO                         /CZE/ [Concomitant]
     Indication: SCHIZOAFFECTIVE DISORDER
     Dosage: 1000 MG, BID
     Route: 048
     Dates: start: 201108
  4. DIPIPERON [Concomitant]
     Dosage: 1 MG, UNK
  5. LITHIUM CARBONATE [Concomitant]
     Indication: SCHIZOAFFECTIVE DISORDER
     Dosage: 400 MG, TID
     Route: 048
  6. LACTULOSESTROOP [Concomitant]
     Dosage: 15 ML, UNK
  7. MOVICOLON [Concomitant]

REACTIONS (7)
  - Sinus bradycardia [Recovered/Resolved]
  - Somnolence [Recovered/Resolved]
  - Dizziness [Recovered/Resolved]
  - Somnolence [Recovered/Resolved]
  - Blood pressure increased [Recovered/Resolved]
  - Nausea [Recovered/Resolved]
  - Nausea [Recovered/Resolved]
